FAERS Safety Report 8463154-6 (Version None)
Quarter: 2012Q2

REPORT INFORMATION
  Report Type: 
  Country: None (occurrence: None)
  Receive Date: 20120323
  Receipt Date: 20111128
  Transmission Date: 20120825
  Serious: Yes (Other)
  Sender: FDA-Public Use
  Company Number: 163-21880-11092942

PATIENT
  Age: 71 Year
  Sex: Male

DRUGS (5)
  1. ACYCLOVIR [Concomitant]
  2. REVLIMID [Suspect]
     Indication: MULTIPLE MYELOMA
     Dosage: 25 MG, QD X 14 DAYS ON ,1 WEEK OFF, PO ; 25 MG, 1 IN 1 D, PO
     Route: 048
     Dates: start: 20110901
  3. REVLIMID [Suspect]
     Indication: MULTIPLE MYELOMA
     Dosage: 25 MG, QD X 14 DAYS ON ,1 WEEK OFF, PO ; 25 MG, 1 IN 1 D, PO
     Route: 048
     Dates: start: 20110724
  4. DEXAMETHASONE [Concomitant]
  5. ASPIRIN [Concomitant]

REACTIONS (1)
  - ANAEMIA [None]
